FAERS Safety Report 23371286 (Version 7)
Quarter: 2024Q2

REPORT INFORMATION
  Report Type: Spontaneous
  Country: US (occurrence: US)
  Receive Date: 20240105
  Receipt Date: 20240624
  Transmission Date: 20240715
  Serious: No
  Sender: FDA-Public Use
  Company Number: US-PFIZER INC-PV202300209067

PATIENT
  Age: 79 Year
  Sex: Female
  Weight: 83.9 kg

DRUGS (2)
  1. IBRANCE [Suspect]
     Active Substance: PALBOCICLIB
     Indication: Breast cancer recurrent
     Dosage: 125 MG
  2. IBRANCE [Suspect]
     Active Substance: PALBOCICLIB
     Indication: Breast cancer female
     Dosage: 75 MG, CYCLIC: DAILY 3 WEEKS ON, 1 WEEK OFF
     Route: 048
     Dates: start: 202401

REACTIONS (4)
  - Diarrhoea [Recovered/Resolved]
  - Abdominal discomfort [Not Recovered/Not Resolved]
  - Arthralgia [Recovering/Resolving]
  - Blood test abnormal [Recovered/Resolved]

NARRATIVE: CASE EVENT DATE: 20240101
